FAERS Safety Report 12929274 (Version 1)
Quarter: 2016Q4

REPORT INFORMATION
  Report Type: Spontaneous
  Country: JP (occurrence: JP)
  Receive Date: 20161110
  Receipt Date: 20161110
  Transmission Date: 20170207
  Serious: Yes (Hospitalization)
  Sender: FDA-Public Use
  Company Number: JP-SHIONOGI, INC-2016001031

PATIENT
  Age: 47 Year
  Sex: Male

DRUGS (18)
  1. CLARITHROMYCIN. [Concomitant]
     Active Substance: CLARITHROMYCIN
     Indication: LUNG INFECTION
  2. MICAFUNGIN SODIUM [Concomitant]
     Active Substance: MICAFUNGIN SODIUM
     Indication: INFECTION
  3. MICAFUNGIN SODIUM [Concomitant]
     Active Substance: MICAFUNGIN SODIUM
     Indication: EMPHYSEMA
     Dosage: UNK
     Route: 065
     Dates: start: 201604
  4. PIPERACILLIN AND TAZOBACTAM [Concomitant]
     Active Substance: PIPERACILLIN SODIUM\TAZOBACTAM SODIUM
     Indication: INFECTION
  5. FINIBAX [Suspect]
     Active Substance: DORIPENEM MONOHYDRATE
     Indication: INFECTION
  6. MINOMYCIN [Concomitant]
     Active Substance: MINOCYCLINE HYDROCHLORIDE
     Indication: INFECTION
  7. RIFAMPICIN [Concomitant]
     Active Substance: RIFAMPIN
     Indication: ATYPICAL MYCOBACTERIAL INFECTION
     Dosage: UNK
     Route: 065
     Dates: start: 201010
  8. RIFAMPICIN [Concomitant]
     Active Substance: RIFAMPIN
     Indication: LUNG INFECTION
  9. LEVOFLOXACIN HEMIHYDRATE [Concomitant]
     Active Substance: LEVOFLOXACIN
     Indication: ATYPICAL MYCOBACTERIAL INFECTION
     Dosage: UNK
     Route: 065
     Dates: start: 201409
  10. VORICONAZOLE. [Concomitant]
     Active Substance: VORICONAZOLE
     Indication: INFECTION
  11. FINIBAX [Suspect]
     Active Substance: DORIPENEM MONOHYDRATE
     Indication: EMPHYSEMA
     Dosage: UNK
     Route: 065
     Dates: start: 201604
  12. ETHAMBUTOL HYDROCHLORIDE. [Suspect]
     Active Substance: ETHAMBUTOL HYDROCHLORIDE
     Indication: ATYPICAL MYCOBACTERIAL INFECTION
     Dosage: UNK
     Route: 065
     Dates: start: 201010
  13. PIPERACILLIN AND TAZOBACTAM [Concomitant]
     Active Substance: PIPERACILLIN SODIUM\TAZOBACTAM SODIUM
     Indication: EMPHYSEMA
     Dosage: UNK
     Route: 065
     Dates: start: 201604
  14. ETHAMBUTOL HYDROCHLORIDE. [Suspect]
     Active Substance: ETHAMBUTOL HYDROCHLORIDE
     Indication: LUNG INFECTION
  15. CLARITHROMYCIN. [Concomitant]
     Active Substance: CLARITHROMYCIN
     Indication: ATYPICAL MYCOBACTERIAL INFECTION
     Dosage: UNK
     Route: 065
     Dates: start: 201010
  16. LEVOFLOXACIN HEMIHYDRATE [Concomitant]
     Active Substance: LEVOFLOXACIN
     Indication: LUNG INFECTION
  17. VORICONAZOLE. [Concomitant]
     Active Substance: VORICONAZOLE
     Indication: EMPHYSEMA
     Dosage: UNK
     Route: 065
     Dates: start: 201604
  18. MINOMYCIN [Concomitant]
     Active Substance: MINOCYCLINE HYDROCHLORIDE
     Indication: EMPHYSEMA
     Dosage: UNK
     Route: 065
     Dates: start: 201604

REACTIONS (1)
  - Illusion [Recovering/Resolving]
